FAERS Safety Report 14342896 (Version 1)
Quarter: 2017Q4

REPORT INFORMATION
  Report Type: Spontaneous
  Country: US (occurrence: US)
  Receive Date: 20171230
  Receipt Date: 20171230
  Transmission Date: 20180321
  Serious: Yes (Disabling)
  Sender: FDA-Public Use
  Company Number: None

PATIENT
  Age: 7 Year
  Sex: Female
  Weight: 26.55 kg

DRUGS (6)
  1. OLLY MULTIVITAMIN [Concomitant]
  2. PROTONIX [Concomitant]
     Active Substance: PANTOPRAZOLE SODIUM
  3. EX-LAX REGULAR STRENGTH STIMULANT LAXATIVE [Concomitant]
     Active Substance: SENNOSIDES
  4. MIRALAX [Suspect]
     Active Substance: POLYETHYLENE GLYCOL 3350
     Indication: CONSTIPATION
     Dates: start: 20110301, end: 20171207
  5. PROBIOTIC [Concomitant]
     Active Substance: PROBIOTICS NOS
  6. MAGNESIUM [Concomitant]
     Active Substance: MAGNESIUM

REACTIONS (15)
  - Anxiety [None]
  - Insomnia [None]
  - Nightmare [None]
  - Mood swings [None]
  - Phobia [None]
  - Amnesia [None]
  - Hyperacusis [None]
  - Cough [None]
  - Initial insomnia [None]
  - Dizziness [None]
  - Abdominal pain upper [None]
  - Gastritis [None]
  - Irritability [None]
  - Aggression [None]
  - Constipation [None]

NARRATIVE: CASE EVENT DATE: 20171206
